FAERS Safety Report 15830873 (Version 1)
Quarter: 2019Q1

REPORT INFORMATION
  Report Type: Spontaneous
  Country: US (occurrence: US)
  Receive Date: 20190114
  Receipt Date: 20190114
  Transmission Date: 20190417
  Serious: No
  Sender: FDA-Public Use
  Company Number: None

PATIENT
  Age: 75 Year
  Sex: Female
  Weight: 87.54 kg

DRUGS (2)
  1. FORTEO [Suspect]
     Active Substance: TERIPARATIDE
     Indication: RHEUMATOID ARTHRITIS
     Dosage: AS DIRECTED
     Route: 058
     Dates: start: 201901
  2. FORTEO [Suspect]
     Active Substance: TERIPARATIDE
     Indication: BONE DENSITY ABNORMAL
     Dosage: AS DIRECTED
     Route: 058
     Dates: start: 201901

REACTIONS (1)
  - Hospitalisation [None]
